FAERS Safety Report 16074322 (Version 1)
Quarter: 2019Q1

REPORT INFORMATION
  Report Type: Spontaneous
  Country: US (occurrence: US)
  Receive Date: 20190314
  Receipt Date: 20190314
  Transmission Date: 20190418
  Serious: No
  Sender: FDA-Public Use
  Company Number: US-HISAMITSU-2018-US-004435

PATIENT
  Age: 75 Year
  Sex: Male
  Weight: 95.26 kg

DRUGS (3)
  1. UNSPECIFIED THYROID MEDICATION [Concomitant]
     Active Substance: UNSPECIFIED INGREDIENT
  2. SALONPAS PAIN RELIEF [Suspect]
     Active Substance: MENTHOL\METHYL SALICYLATE
     Dosage: 1 PATCH NIGHTLY AS NEEDED
     Route: 061
     Dates: end: 20180317
  3. METFORMIN [Concomitant]
     Active Substance: METFORMIN HYDROCHLORIDE

REACTIONS (2)
  - Application site erythema [Recovered/Resolved]
  - Application site pain [Recovered/Resolved]
